FAERS Safety Report 20324164 (Version 2)
Quarter: 2022Q1

REPORT INFORMATION
  Report Type: Report from Study
  Country: US (occurrence: US)
  Receive Date: 20220111
  Receipt Date: 20220116
  Transmission Date: 20220423
  Serious: Yes (Other)
  Sender: FDA-Public Use
  Company Number: US-REGENERON PHARMACEUTICALS, INC.-2022-10664

PATIENT
  Age: 75 Year
  Sex: Male

DRUGS (2)
  1. CASIRIVIMAB\IMDEVIMAB [Suspect]
     Active Substance: CASIRIVIMAB\IMDEVIMAB
     Indication: COVID-19
     Dosage: 1200 MG, SINGLE
     Route: 042
     Dates: start: 20220102, end: 20220102
  2. ABX [Concomitant]
     Indication: Viral infection
     Dosage: UNK
     Route: 048

REACTIONS (1)
  - Product use in unapproved indication [Unknown]

NARRATIVE: CASE EVENT DATE: 20220102
